FAERS Safety Report 14586119 (Version 1)
Quarter: 2018Q1

REPORT INFORMATION
  Report Type: Spontaneous
  Country: US (occurrence: US)
  Receive Date: 20180301
  Receipt Date: 20180301
  Transmission Date: 20180509
  Serious: No
  Sender: FDA-Public Use
  Company Number: US-BIOVERATIV-2018BV000092

PATIENT
  Sex: Female
  Weight: 90 kg

DRUGS (2)
  1. ALPROLIX [Suspect]
     Active Substance: EFTRENONACOG ALFA
     Indication: FACTOR IX DEFICIENCY
     Dosage: PRN WHEN NECESSARY
     Route: 042
  2. ALPROLIX [Suspect]
     Active Substance: EFTRENONACOG ALFA
     Dosage: 100 U/KG EVERY OTHER DAY FOR CURRENT BLEED AND DAILY X 1 DOSE ON DEMAND FOR ADDITIONAL BLEEDING
     Route: 042

REACTIONS (2)
  - Maternal exposure during pregnancy [Not Recovered/Not Resolved]
  - Haemorrhage [Not Recovered/Not Resolved]
